FAERS Safety Report 6714920-6 (Version None)
Quarter: 2010Q2

REPORT INFORMATION
  Report Type: 
  Country: None (occurrence: None)
  Receive Date: 20100506
  Receipt Date: 20100506
  Transmission Date: 20101027
  Serious: No
  Sender: FDA-Public Use
  Company Number: None

PATIENT
  Age: 30 Month
  Sex: Male
  Weight: 16.7831 kg

DRUGS (2)
  1. CHILDREN'S TYLENOL 80 MG PER 1/2 TSP MCNEIL PPC [Suspect]
     Indication: EAR INFECTION
     Dates: start: 20100401, end: 20100501
  2. CHILDREN'S TYLENOL 80 MG PER 1/2 TSP MCNEIL PPC [Suspect]
     Indication: EAR PAIN
     Dates: start: 20100401, end: 20100501

REACTIONS (3)
  - PNEUMONIA [None]
  - PRODUCT CONTAMINATION MICROBIAL [None]
  - PRODUCT QUALITY ISSUE [None]
